FAERS Safety Report 7509866-X (Version None)
Quarter: 2011Q2

REPORT INFORMATION
  Report Type: 
  Country: None (occurrence: None)
  Receive Date: 20110527
  Receipt Date: 20110513
  Transmission Date: 20111010
  Serious: Yes (Other)
  Sender: FDA-Public Use
  Company Number: B0721024A

PATIENT
  Age: 66 Year
  Sex: Female

DRUGS (3)
  1. DYAZIDE [Concomitant]
  2. AVAMYS [Suspect]
     Dosage: 2IUAX PER DAY
     Route: 045
     Dates: start: 20110204, end: 20110209
  3. PREDNISOLONE SODIUM SUCCINATE INJ [Concomitant]

REACTIONS (3)
  - BLOOD PRESSURE INCREASED [None]
  - MALAISE [None]
  - PRODUCT SUBSTITUTION ISSUE [None]
